FAERS Safety Report 9015478 (Version 3)
Quarter: 2016Q1

REPORT INFORMATION
  Report Type: Spontaneous
  Country: US (occurrence: US)
  Receive Date: 20130116
  Receipt Date: 20160107
  Transmission Date: 20160526
  Serious: Yes (Other)
  Sender: FDA-Public Use
  Company Number: US-COVIDIEN/TYCO HEALTHCARE/MALLINCKRODT-T201204495

PATIENT
  Sex: Male

DRUGS (1)
  1. GABLOFEN [Suspect]
     Active Substance: BACLOFEN
     Indication: MUSCLE SPASTICITY
     Dosage: 450 MCG/DAY
     Route: 037

REACTIONS (10)
  - Underdose [Recovered/Resolved]
  - Overdose [Recovered/Resolved]
  - Infection [Recovered/Resolved]
  - Device failure [Recovered/Resolved]
  - Muscular weakness [Recovered/Resolved]
  - Pruritus [Recovered/Resolved]
  - Hyperhidrosis [Recovered/Resolved]
  - Muscle twitching [Recovered/Resolved]
  - Drug withdrawal syndrome [Recovered/Resolved]
  - Muscle tightness [Recovered/Resolved]

NARRATIVE: CASE EVENT DATE: 2012
